FAERS Safety Report 6666431-4 (Version None)
Quarter: 2010Q1

REPORT INFORMATION
  Report Type: 
  Country: None (occurrence: None)
  Receive Date: 20100331
  Receipt Date: 20100322
  Transmission Date: 20100710
  Serious: Yes (Other)
  Sender: FDA-Public Use
  Company Number: US-1181169

PATIENT
  Sex: Male
  Weight: 12.7007 kg

DRUGS (1)
  1. VIGAMOX [Suspect]
     Indication: CONJUNCTIVITIS
     Dosage: ONE GTT OU Q 12 HOURS OPHTHALMIC
     Route: 047
     Dates: start: 20100306, end: 20100306

REACTIONS (6)
  - BLEPHARITIS [None]
  - EYE DISCHARGE [None]
  - EYE HAEMORRHAGE [None]
  - EYE INFECTION [None]
  - EYE SWELLING [None]
  - OCULAR HYPERAEMIA [None]
